FAERS Safety Report 13644343 (Version 1)
Quarter: 2017Q2

REPORT INFORMATION
  Report Type: Spontaneous
  Country: US (occurrence: US)
  Receive Date: 20170612
  Receipt Date: 20170612
  Transmission Date: 20170830
  Serious: No
  Sender: FDA-Public Use
  Company Number: US-ROCHE-1305377

PATIENT
  Sex: Female

DRUGS (5)
  1. XELODA [Suspect]
     Active Substance: CAPECITABINE
     Dosage: 3 TABLETS, 14 DAYS ON FOLLOWED BY 7 DAYS OFF
     Route: 048
     Dates: start: 20130723
  2. XELODA [Suspect]
     Active Substance: CAPECITABINE
     Route: 048
     Dates: start: 20130614
  3. XELODA [Suspect]
     Active Substance: CAPECITABINE
     Dosage: FOR 14 DAYS
     Route: 048
     Dates: start: 20130613
  4. XELODA [Suspect]
     Active Substance: CAPECITABINE
     Dosage: 5 TABLETS, 14 DAYS ON FOLLOWED BY 7 DAYS OFF
     Route: 048
     Dates: start: 20130612
  5. XELODA [Suspect]
     Active Substance: CAPECITABINE
     Indication: COLON CANCER
     Dosage: THREE TABLETS TWICE A DAILY, 14 DAYS ON FOLLOWED BY 7 DAYS OFF
     Route: 048
     Dates: start: 20130809

REACTIONS (3)
  - Pain in extremity [Unknown]
  - Erythema [Unknown]
  - Neuropathy peripheral [Not Recovered/Not Resolved]
